FAERS Safety Report 16573148 (Version 4)
Quarter: 2019Q4

REPORT INFORMATION
  Report Type: Spontaneous
  Country: US (occurrence: US)
  Receive Date: 20190715
  Receipt Date: 20191029
  Transmission Date: 20200122
  Serious: Yes (Other)
  Sender: FDA-Public Use
  Company Number: US-PFIZER INC-2019299697

PATIENT
  Age: 72 Year
  Sex: Female
  Weight: 57 kg

DRUGS (6)
  1. LYRICA [Suspect]
     Active Substance: PREGABALIN
     Indication: OSTEOPOROSIS
  2. LYRICA [Suspect]
     Active Substance: PREGABALIN
     Indication: UPPER LIMB FRACTURE
  3. LYRICA [Suspect]
     Active Substance: PREGABALIN
     Indication: FIBROMYALGIA
     Dosage: 100 MG, 3X/DAY
     Route: 048
  4. LYRICA [Suspect]
     Active Substance: PREGABALIN
     Indication: NEURALGIA
  5. LYRICA [Suspect]
     Active Substance: PREGABALIN
     Indication: NERVE INJURY
  6. LYRICA [Suspect]
     Active Substance: PREGABALIN
     Indication: BACK PAIN

REACTIONS (5)
  - Cardiac disorder [Unknown]
  - Impaired healing [Unknown]
  - Fall [Unknown]
  - Humerus fracture [Unknown]
  - Upper limb fracture [Unknown]

NARRATIVE: CASE EVENT DATE: 2017
